FAERS Safety Report 8919212 (Version 2)
Quarter: 2013Q1

REPORT INFORMATION
  Report Type: Spontaneous
  Country: SI (occurrence: SI)
  Receive Date: 20121121
  Receipt Date: 20130102
  Transmission Date: 20140127
  Serious: No
  Sender: FDA-Public Use
  Company Number: SI-B.I. PHARMACEUTICALS,INC./RIDGEFIELD-2012-AP-01034AP

PATIENT
  Age: 72 Year
  Sex: Female
  Weight: 65 kg

DRUGS (5)
  1. PRADAXA [Suspect]
     Indication: ATRIAL FIBRILLATION
     Dosage: 300 MG
     Route: 048
     Dates: start: 20120529, end: 20120619
  2. CONTROLOC [Concomitant]
     Indication: DYSPEPSIA
  3. CONCOR [Concomitant]
     Indication: ATRIAL FIBRILLATION
  4. BUSCOPAN [Concomitant]
     Indication: IRRITABLE BOWEL SYNDROME
  5. ANALGIN [Concomitant]
     Indication: ABDOMINAL PAIN

REACTIONS (3)
  - Abdominal discomfort [Recovered/Resolved]
  - Oedema peripheral [Recovered/Resolved]
  - Pruritus [Recovered/Resolved]
